FAERS Safety Report 5513222-3 (Version None)
Quarter: 2007Q4

REPORT INFORMATION
  Report Type: 
  Country: None (occurrence: None)
  Receive Date: 20071112
  Receipt Date: 20071031
  Transmission Date: 20080405
  Serious: Yes (Life-Threatening)
  Sender: FDA-Public Use
  Company Number: JP-SANOFI-SYNTHELABO-A01200709315

PATIENT
  Sex: Female
  Weight: 55 kg

DRUGS (19)
  1. GLYCEOL [Concomitant]
     Indication: CEREBRAL INFARCTION
     Route: 041
     Dates: start: 20070816, end: 20070827
  2. SOLCOSERYL [Concomitant]
     Indication: CEREBRAL INFARCTION
     Route: 041
     Dates: start: 20070816, end: 20070827
  3. NICHOLIN H [Concomitant]
     Indication: CEREBRAL INFARCTION
     Route: 041
     Dates: start: 20070816, end: 20070827
  4. VEEN-F [Concomitant]
     Indication: DRUG USE FOR UNKNOWN INDICATION
     Route: 041
     Dates: start: 20070816, end: 20070827
  5. ALLOPURINOL [Concomitant]
     Indication: DRUG USE FOR UNKNOWN INDICATION
     Route: 048
  6. FERROMIA [Concomitant]
     Indication: DRUG USE FOR UNKNOWN INDICATION
     Route: 048
  7. ALDACTONE [Concomitant]
     Indication: DRUG USE FOR UNKNOWN INDICATION
     Route: 048
  8. LASIX [Concomitant]
     Indication: DRUG USE FOR UNKNOWN INDICATION
     Route: 048
  9. JUVELA N [Concomitant]
     Indication: DRUG USE FOR UNKNOWN INDICATION
     Route: 048
  10. WARFARIN POTASSIUM [Concomitant]
     Indication: DRUG USE FOR UNKNOWN INDICATION
     Route: 048
  11. ADALAT [Concomitant]
     Indication: DRUG USE FOR UNKNOWN INDICATION
     Route: 048
  12. DOXAZOSIN MESYLATE [Concomitant]
     Indication: DRUG USE FOR UNKNOWN INDICATION
     Route: 048
  13. DIOVAN [Concomitant]
     Indication: DRUG USE FOR UNKNOWN INDICATION
     Route: 048
  14. SUNRYTHM [Concomitant]
     Indication: DRUG USE FOR UNKNOWN INDICATION
     Route: 048
  15. AMARYL [Concomitant]
     Indication: DRUG USE FOR UNKNOWN INDICATION
     Route: 048
  16. PLAVIX [Suspect]
     Indication: CEREBRAL INFARCTION
     Route: 048
     Dates: start: 20070816, end: 20070822
  17. ASPIRIN [Concomitant]
     Indication: CEREBRAL INFARCTION
     Dosage: UNK
     Route: 065
     Dates: start: 20040309, end: 20070815
  18. RADICUT [Concomitant]
     Indication: DRUG USE FOR UNKNOWN INDICATION
     Dosage: UNK
     Route: 065
  19. HEPARIN SODIUM [Concomitant]
     Indication: CEREBRAL INFARCTION
     Route: 041
     Dates: start: 20070816, end: 20070827

REACTIONS (7)
  - FEBRILE INFECTION [None]
  - HAEMOGLOBIN DECREASED [None]
  - HAEMOLYSIS [None]
  - PYREXIA [None]
  - RENAL FAILURE [None]
  - THROMBOCYTOPENIA [None]
  - THROMBOTIC THROMBOCYTOPENIC PURPURA [None]
